FAERS Safety Report 4652624-4 (Version None)
Quarter: 2005Q2

REPORT INFORMATION
  Report Type: 
  Country: None (occurrence: None)
  Receive Date: 20050502
  Receipt Date: 20050415
  Transmission Date: 20051028
  Serious: Yes (Other)
  Sender: FDA-Public Use
  Company Number: GB-2004-032654

PATIENT
  Age: 37 Year
  Sex: Female
  Weight: 66 kg

DRUGS (1)
  1. MIRENA [Suspect]
     Indication: CONTRACEPTION
     Dosage: 20 UG/DAY, CONT, INTRA-UTERINE
     Route: 015
     Dates: start: 20020114

REACTIONS (21)
  - AMNIOTIC CAVITY DISORDER [None]
  - ANTEPARTUM HAEMORRHAGE [None]
  - ASTHENIA [None]
  - BETA HAEMOLYTIC STREPTOCOCCAL INFECTION [None]
  - CANDIDA SEPSIS [None]
  - COUGH [None]
  - DEHYDRATION [None]
  - DEVICE FAILURE [None]
  - DIZZINESS [None]
  - DRUG EXPOSURE DURING PREGNANCY [None]
  - GENITAL HAEMORRHAGE [None]
  - INFECTION [None]
  - IUCD COMPLICATION [None]
  - MUSCLE SPASMS [None]
  - PREGNANCY WITH CONTRACEPTIVE DEVICE [None]
  - PREMATURE RUPTURE OF MEMBRANES [None]
  - PREMATURE SEPARATION OF PLACENTA [None]
  - RETAINED PLACENTA OR MEMBRANES [None]
  - STREPTOCOCCAL SEPSIS [None]
  - UNINTENDED PREGNANCY [None]
  - VAGINAL HAEMORRHAGE [None]
